FAERS Safety Report 23384424 (Version 4)
Quarter: 2024Q1

REPORT INFORMATION
  Report Type: Report from Study
  Country: US (occurrence: US)
  Receive Date: 20240109
  Receipt Date: 20240304
  Transmission Date: 20240410
  Serious: Yes (Other)
  Sender: FDA-Public Use
  Company Number: US-TAIHOP-2024-000117

PATIENT
  Age: 72 Year
  Sex: Male

DRUGS (1)
  1. LONSURF [Suspect]
     Active Substance: TIPIRACIL HYDROCHLORIDE\TRIFLURIDINE
     Indication: Rectal cancer metastatic
     Dosage: CYCLE UNKNOWN, FORM STRENGTH: 15 AND 20 MG.
     Route: 048
     Dates: start: 202310

REACTIONS (9)
  - Neutropenia [Unknown]
  - Narcolepsy [Unknown]
  - Anaemia [Unknown]
  - Platelet count decreased [Unknown]
  - Decreased appetite [Unknown]
  - Lethargy [Unknown]
  - Weight decreased [Unknown]
  - Fatigue [Not Recovered/Not Resolved]
  - Inappropriate schedule of product administration [Unknown]

NARRATIVE: CASE EVENT DATE: 20240205
